FAERS Safety Report 25714368 (Version 1)
Quarter: 2025Q3

REPORT INFORMATION
  Report Type: Spontaneous
  Country: US (occurrence: US)
  Receive Date: 20250822
  Receipt Date: 20250822
  Transmission Date: 20251021
  Serious: No
  Sender: Kenvue
  Company Number: US-KENVUE-20250804003

PATIENT
  Age: 64 Year
  Sex: Male

DRUGS (1)
  1. MENS ROGAINE EXTRA STRENGTH [Suspect]
     Active Substance: MINOXIDIL
     Indication: Alopecia
     Dosage: HALF A CAP IN FRONT AND HALF IN BACK, TWICE A DAY
     Route: 061
     Dates: start: 20241231

REACTIONS (2)
  - Product administered at inappropriate site [Unknown]
  - Overdose [Unknown]

NARRATIVE: CASE EVENT DATE: 20241231
